FAERS Safety Report 22236540 (Version 1)
Quarter: 2023Q2

REPORT INFORMATION
  Report Type: Other
  Country: US (occurrence: None)
  Receive Date: 20230420
  Receipt Date: 20230420
  Transmission Date: 20230722
  Serious: No
  Sender: FDA-Public Use
  Company Number: US-ROCHE-3271531

PATIENT
  Age: 64 Year
  Sex: Female

DRUGS (24)
  1. AVASTIN [Suspect]
     Active Substance: BEVACIZUMAB
     Indication: Age-related macular degeneration
     Route: 050
  2. VITAMIN D3 [Concomitant]
     Active Substance: CHOLECALCIFEROL
  3. VITAMIN A [Concomitant]
     Active Substance: VITAMIN A
  4. MENAQUINONE 6 [Concomitant]
     Active Substance: MENAQUINONE 6
     Dosage: 100 MCG
  5. ASCORBYL PALMITATE [Concomitant]
     Active Substance: ASCORBYL PALMITATE
  6. ASTAXANTHIN [Concomitant]
     Active Substance: ASTAXANTHIN
  7. LUTEIN [Concomitant]
     Active Substance: LUTEIN
  8. TAURINE [Concomitant]
     Active Substance: TAURINE
  9. ZEAXANTHIN [Concomitant]
     Active Substance: ZEAXANTHIN
  10. ZINC [Concomitant]
     Active Substance: ZINC
  11. MAGTEIN [Concomitant]
  12. COENZYME Q10 [Concomitant]
     Active Substance: DIETARY SUPPLEMENT\UBIDECARENONE
  13. SYNTHROID [Concomitant]
     Active Substance: LEVOTHYROXINE SODIUM
     Dosage: 50 MCG
  14. SODIUM ASCORBATE [Concomitant]
     Active Substance: SODIUM ASCORBATE
  15. ALPHA LIPOIC ACID [Concomitant]
     Active Substance: .ALPHA.-LIPOIC ACID
  16. ASPIRIN [Concomitant]
     Active Substance: ASPIRIN
  17. DIMETHYL SULFONE [Concomitant]
     Active Substance: DIMETHYL SULFONE
  18. GLUCOSAMINE SULFATE [Concomitant]
     Active Substance: GLUCOSAMINE SULFATE
  19. QUERCETIN [Concomitant]
     Active Substance: QUERCETIN
  20. IODINE\POTASSIUM IODIDE [Concomitant]
     Active Substance: IODINE\POTASSIUM IODIDE
  21. POTASSIUM CITRATE [Concomitant]
     Active Substance: POTASSIUM CITRATE
  22. SEA SALT [Concomitant]
     Active Substance: SEA SALT
  23. MELATONIN [Concomitant]
     Active Substance: MELATONIN
  24. HERBALS\TURMERIC [Concomitant]
     Active Substance: HERBALS\TURMERIC

REACTIONS (3)
  - Off label use [Unknown]
  - Off label use [Unknown]
  - No adverse event [Unknown]
